FAERS Safety Report 12677312 (Version 1)
Quarter: 2016Q3

REPORT INFORMATION
  Report Type: Spontaneous
  Country: FR (occurrence: FR)
  Receive Date: 20160823
  Receipt Date: 20160823
  Transmission Date: 20161109
  Serious: Yes (Hospitalization)
  Sender: FDA-Public Use
  Company Number: FR-PFIZER INC-2016393322

PATIENT
  Age: 83 Year
  Sex: Female

DRUGS (13)
  1. ALLOPURINOL. [Concomitant]
     Active Substance: ALLOPURINOL
     Dosage: UNK
  2. NEURONTIN [Concomitant]
     Active Substance: GABAPENTIN
     Dosage: UNK
  3. CORDARONE [Suspect]
     Active Substance: AMIODARONE HYDROCHLORIDE
     Indication: ATRIAL FIBRILLATION
     Dosage: 200 MG, DAILY
     Route: 048
  4. CARDENSIEL [Suspect]
     Active Substance: BISOPROLOL FUMARATE
     Dosage: 1.25 MG, DAILY
     Route: 065
     Dates: start: 201603
  5. CARDENSIEL [Suspect]
     Active Substance: BISOPROLOL FUMARATE
     Dosage: 2.5 MG, DAILY
     Route: 065
  6. IMOVANE [Concomitant]
     Active Substance: ZOPICLONE
     Dosage: UNK
  7. PREVISCAN [Concomitant]
     Active Substance: FLUINDIONE
     Dosage: UNK
  8. CACIT VITAMINE D3 [Concomitant]
     Active Substance: CALCIUM CARBONATE\CHOLECALCIFEROL
     Dosage: UNK
  9. LANTUS [Concomitant]
     Active Substance: INSULIN GLARGINE
     Dosage: UNK
  10. CRESTOR [Concomitant]
     Active Substance: ROSUVASTATIN CALCIUM
     Dosage: UNK
  11. UVEDOSE [Concomitant]
     Active Substance: CHOLECALCIFEROL
     Dosage: UNK
  12. LASILIX SPECIAL [Concomitant]
     Active Substance: FUROSEMIDE
     Dosage: UNK
  13. OMEPRAZOLE. [Concomitant]
     Active Substance: OMEPRAZOLE
     Dosage: UNK

REACTIONS (13)
  - Cyanosis [Unknown]
  - Abdominal pain [Unknown]
  - Hypoperfusion [Not Recovered/Not Resolved]
  - Oedema peripheral [Unknown]
  - Renal failure [Unknown]
  - Pulmonary oedema [Unknown]
  - Shock [Unknown]
  - Cardiac failure [Recovered/Resolved with Sequelae]
  - Right ventricular failure [Unknown]
  - Metabolic acidosis [Recovered/Resolved]
  - Hypothermia [Unknown]
  - Bradycardia [Not Recovered/Not Resolved]
  - Hyperkalaemia [Not Recovered/Not Resolved]

NARRATIVE: CASE EVENT DATE: 20160331
